FAERS Safety Report 10385688 (Version 1)
Quarter: 2014Q3

REPORT INFORMATION
  Report Type: Spontaneous
  Country: IT (occurrence: None)
  Receive Date: 20140812
  Receipt Date: 20140812
  Transmission Date: 20150326
  Serious: Yes (Other)
  Sender: FDA-Public Use
  Company Number: NL01PV14.36776

PATIENT
  Age: 75 Year
  Sex: Female

DRUGS (5)
  1. CARDIO ASPIRIN (ACETYLSALICYLIC ACID) [Concomitant]
  2. METFORMIN HYDROCHLORIDE (METFORMIN HYDROCHLORIDE) [Concomitant]
     Active Substance: METFORMIN HYDROCHLORIDE
  3. ZOLPIDEM [Suspect]
     Active Substance: ZOLPIDEM\ZOLPIDEM TARTRATE
     Indication: INTENTIONAL SELF-INJURY
     Dosage: 30 DF TOTAL
     Route: 048
     Dates: start: 20140519, end: 20140519
  4. XERISTAR (DULOXETINE HYDROCHLORIDE)CAPSULE [Concomitant]
  5. VASORETIC (ENLAPRIL MALEATE, HYDROCHLORTHIAZIDE) [Concomitant]

REACTIONS (3)
  - Drug abuse [None]
  - Intentional self-injury [None]
  - Speech disorder [None]

NARRATIVE: CASE EVENT DATE: 20140519
